FAERS Safety Report 11595757 (Version 1)
Quarter: 2015Q4

REPORT INFORMATION
  Report Type: Spontaneous
  Country: SE (occurrence: SE)
  Receive Date: 20151006
  Receipt Date: 20151006
  Transmission Date: 20160304
  Serious: Yes (Other)
  Sender: FDA-Public Use
  Company Number: SE-SUN PHARMACEUTICAL INDUSTRIES LTD-2015R1-103986

PATIENT
  Age: 10 Year
  Sex: Male

DRUGS (10)
  1. TIGECYCLINE. [Suspect]
     Active Substance: TIGECYCLINE
     Indication: MASTOIDITIS
     Dosage: UNK
     Route: 065
     Dates: start: 200710
  2. TIGECYCLINE. [Suspect]
     Active Substance: TIGECYCLINE
     Indication: MYCOBACTERIUM ABSCESSUS INFECTION
  3. CLARITHROMYCIN. [Suspect]
     Active Substance: CLARITHROMYCIN
     Indication: MASTOIDITIS
     Dosage: UNK
     Route: 065
     Dates: start: 2007, end: 200805
  4. LINEZOLID. [Concomitant]
     Active Substance: LINEZOLID
     Indication: MASTOIDITIS
     Dosage: UNK
     Route: 065
     Dates: start: 200706, end: 200710
  5. AMIKACIN [Concomitant]
     Active Substance: AMIKACIN
     Indication: MYCOBACTERIUM ABSCESSUS INFECTION
  6. LINEZOLID. [Concomitant]
     Active Substance: LINEZOLID
     Indication: MYCOBACTERIUM ABSCESSUS INFECTION
  7. CLARITHROMYCIN. [Suspect]
     Active Substance: CLARITHROMYCIN
     Indication: MYCOBACTERIUM ABSCESSUS INFECTION
  8. LINEZOLID. [Concomitant]
     Active Substance: LINEZOLID
     Indication: MASTOIDITIS
     Dosage: UNK
     Route: 065
     Dates: end: 200712
  9. AMIKACIN [Concomitant]
     Active Substance: AMIKACIN
     Indication: MASTOIDITIS
     Dosage: UNK
     Route: 065
     Dates: end: 200706
  10. LINEZOLID. [Concomitant]
     Active Substance: LINEZOLID
     Indication: MYCOBACTERIUM ABSCESSUS INFECTION

REACTIONS (2)
  - Abdominal pain [Unknown]
  - Drug ineffective [Unknown]

NARRATIVE: CASE EVENT DATE: 2007
